FAERS Safety Report 25994327 (Version 1)
Quarter: 2025Q4

REPORT INFORMATION
  Report Type: Spontaneous
  Country: US (occurrence: US)
  Receive Date: 20251104
  Receipt Date: 20251104
  Transmission Date: 20260119
  Serious: Yes (Other)
  Sender: RANBAXY
  Company Number: US-SUN PHARMACEUTICAL INDUSTRIES INC-2025R1-533946

PATIENT
  Sex: Female

DRUGS (1)
  1. ILUMYA [Suspect]
     Active Substance: TILDRAKIZUMAB-ASMN
     Indication: Psoriasis
     Dosage: 100 MILLIGRAM PER MILLILITRE, WEEK 0, WEEK 4, EVERY 12 WEEKS
     Route: 065
     Dates: start: 20251014

REACTIONS (4)
  - Urinary tract infection [Unknown]
  - Bronchitis [Unknown]
  - Paraesthesia [Unknown]
  - Pyrexia [Unknown]
